FAERS Safety Report 24728913 (Version 2)
Quarter: 2024Q4

REPORT INFORMATION
  Report Type: Spontaneous
  Country: JP (occurrence: JP)
  Receive Date: 20241212
  Receipt Date: 20241231
  Transmission Date: 20250114
  Serious: No
  Sender: AMGEN
  Company Number: JP-ONO-2024JP024857

PATIENT

DRUGS (1)
  1. PARSABIV [Suspect]
     Active Substance: ETELCALCETIDE HYDROCHLORIDE
     Indication: Hyperparathyroidism secondary
     Dosage: UNK
     Route: 010

REACTIONS (1)
  - Vein disorder [Unknown]
